FAERS Safety Report 4412302-3 (Version None)
Quarter: 2004Q3

REPORT INFORMATION
  Report Type: 
  Country: None (occurrence: None)
  Receive Date: 20040727
  Receipt Date: 20040714
  Transmission Date: 20050211
  Serious: Yes (Hospitalization)
  Sender: FDA-Public Use
  Company Number: US-JNJFOC-20040704315

PATIENT
  Age: 32 Year
  Sex: Female
  Weight: 83.9154 kg

DRUGS (5)
  1. INFLIXIMAB (INFLIXIMAB, RECOMBINANT) LYOPHILIZED POWDER [Suspect]
     Indication: CROHN'S DISEASE
     Dosage: 5 MG/KG, INTRAVENOUS SEE IMAGE
     Route: 042
     Dates: start: 20030811, end: 20030811
  2. ANTIBIOTICS (ANTIBIOTICS) [Concomitant]
  3. NARCOTIC ANALGESICS (ANALGESICS) [Concomitant]
  4. ANTIDEPRESSANTS (ANTIDEPRESSANTS) [Concomitant]
  5. PREDNISONE [Concomitant]

REACTIONS (5)
  - ABSCESS [None]
  - ANAL FISTULA [None]
  - CONDITION AGGRAVATED [None]
  - CROHN'S DISEASE [None]
  - LUPUS-LIKE SYNDROME [None]
